FAERS Safety Report 6902106-1 (Version None)
Quarter: 2010Q3

REPORT INFORMATION
  Report Type: 
  Country: None (occurrence: None)
  Receive Date: 20100803
  Receipt Date: 20080423
  Transmission Date: 20110219
  Serious: No
  Sender: FDA-Public Use
  Company Number: US-PFIZER INC-2008036672

PATIENT
  Sex: Female

DRUGS (4)
  1. LYRICA [Suspect]
     Indication: PAIN
     Dates: start: 20060701
  2. LYRICA [Suspect]
     Indication: MUSCULOSKELETAL STIFFNESS
  3. VITAMIN TAB [Concomitant]
  4. ALEVE (CAPLET) [Concomitant]

REACTIONS (10)
  - CONFUSIONAL STATE [None]
  - CONSTIPATION [None]
  - DISTURBANCE IN ATTENTION [None]
  - DIZZINESS [None]
  - FATIGUE [None]
  - MUSCULAR WEAKNESS [None]
  - MYALGIA [None]
  - ROTATOR CUFF SYNDROME [None]
  - SOMNOLENCE [None]
  - WEIGHT INCREASED [None]
